FAERS Safety Report 5030297-9 (Version None)
Quarter: 2006Q2

REPORT INFORMATION
  Report Type: 
  Country: None (occurrence: None)
  Receive Date: 20060614
  Receipt Date: 20060526
  Transmission Date: 20061013
  Serious: Yes (Hospitalization)
  Sender: FDA-Public Use
  Company Number: ES200606001258

PATIENT
  Age: 74 Year
  Sex: Female

DRUGS (2)
  1. FORSTEO(TERIPARATIDE) PEN,DISPOSABLE [Suspect]
     Indication: OSTEOPOROSIS
     Dosage: 20 UG DAILY (1/D), SUBCUTANEOUS
     Route: 058
     Dates: start: 20050401
  2. FORTEO [Concomitant]

REACTIONS (2)
  - HERNIAL EVENTRATION [None]
  - INTESTINAL OBSTRUCTION [None]
